FAERS Safety Report 5031462-7 (Version None)
Quarter: 2006Q2

REPORT INFORMATION
  Report Type: 
  Country: None (occurrence: None)
  Receive Date: 20060616
  Receipt Date: 20060612
  Transmission Date: 20061013
  Serious: Yes (Life-Threatening, Hospitalization, Other)
  Sender: FDA-Public Use
  Company Number: 430016M06USA

PATIENT
  Age: 44 Year
  Sex: Female
  Weight: 136.1 kg

DRUGS (1)
  1. NOVANTRONE [Suspect]
     Indication: MULTIPLE SCLEROSIS
     Dates: start: 20020101

REACTIONS (1)
  - ACUTE LYMPHOCYTIC LEUKAEMIA [None]
